FAERS Safety Report 12582224 (Version 1)
Quarter: 2016Q3

REPORT INFORMATION
  Report Type: Spontaneous
  Country: US (occurrence: US)
  Receive Date: 20160722
  Receipt Date: 20160722
  Transmission Date: 20161109
  Serious: No
  Sender: FDA-Public Use
  Company Number: US-ASTRAZENECA-2016SE66145

PATIENT
  Age: 72 Year
  Sex: Female
  Weight: 82.6 kg

DRUGS (2)
  1. SYMBICORT [Suspect]
     Active Substance: BUDESONIDE\FORMOTEROL FUMARATE DIHYDRATE
     Indication: LUNG DISORDER
     Dosage: 160/4.5 MCG TWO PUFFS TWICE A DAY
     Route: 055
     Dates: start: 2010
  2. SYMBICORT [Suspect]
     Active Substance: BUDESONIDE\FORMOTEROL FUMARATE DIHYDRATE
     Indication: LUNG DISORDER
     Dosage: 160/4.5 MCG TWO PUFFS TWICE A DAY, MONDAY WEDNESDAY AND FRIDAY
     Route: 055
     Dates: start: 2010

REACTIONS (4)
  - Intentional product misuse [Unknown]
  - Expired product administered [Unknown]
  - Device malfunction [Unknown]
  - Palpitations [Unknown]

NARRATIVE: CASE EVENT DATE: 2014
